FAERS Safety Report 9892879 (Version 1)
Quarter: 2014Q1

REPORT INFORMATION
  Report Type: Spontaneous
  Country: IT (occurrence: IT)
  Receive Date: 20140213
  Receipt Date: 20140213
  Transmission Date: 20141002
  Serious: Yes (Hospitalization)
  Sender: FDA-Public Use
  Company Number: IT-PFIZER INC-2014039438

PATIENT
  Age: 45 Year
  Sex: Female

DRUGS (3)
  1. LYRICA [Suspect]
     Dosage: 1500 MG (20 TABLETS OF LYRICA 75 MG), TOTAL
     Route: 048
     Dates: start: 20140104, end: 20140104
  2. ABILIFY [Concomitant]
     Dosage: USUAL DOSE
  3. TAVOR [Concomitant]
     Dosage: 2.5 MG, UNK

REACTIONS (1)
  - Drug abuse [Recovered/Resolved]
